FAERS Safety Report 11644221 (Version 2)
Quarter: 2016Q1

REPORT INFORMATION
  Report Type: Spontaneous
  Country: US (occurrence: US)
  Receive Date: 20151020
  Receipt Date: 20160309
  Transmission Date: 20160525
  Serious: No
  Sender: FDA-Public Use
  Company Number: US-BRISTOL-MYERS SQUIBB COMPANY-BMS-2015-069935

PATIENT
  Age: 63 Year
  Sex: Female

DRUGS (3)
  1. SPRYCEL [Suspect]
     Active Substance: DASATINIB
     Dosage: 50 MG, UNK
     Route: 048
     Dates: start: 20150723
  2. SPRYCEL [Suspect]
     Active Substance: DASATINIB
     Indication: CHRONIC LYMPHOCYTIC LEUKAEMIA
     Dosage: 70 MG, QD
     Route: 048
     Dates: start: 20150826
  3. ATIVAN [Concomitant]
     Active Substance: LORAZEPAM
     Indication: PRODUCT USED FOR UNKNOWN INDICATION
     Route: 065

REACTIONS (5)
  - Nail discolouration [Unknown]
  - Dyspnoea [Unknown]
  - Nausea [Recovering/Resolving]
  - Rash generalised [Recovering/Resolving]
  - Vomiting [Recovering/Resolving]

NARRATIVE: CASE EVENT DATE: 20150810
